FAERS Safety Report 11717765 (Version 2)
Quarter: 2016Q1

REPORT INFORMATION
  Report Type: Spontaneous
  Country: US (occurrence: US)
  Receive Date: 20151110
  Receipt Date: 20160225
  Transmission Date: 20160525
  Serious: No
  Sender: FDA-Public Use
  Company Number: US-LEO PHARMA-238127

PATIENT
  Age: 56 Year
  Sex: Male

DRUGS (1)
  1. PICATO [Suspect]
     Active Substance: INGENOL MEBUTATE
     Indication: PRECANCEROUS SKIN LESION
     Route: 061
     Dates: start: 201511

REACTIONS (8)
  - Application site irritation [Recovering/Resolving]
  - Application site discomfort [Recovering/Resolving]
  - Drug administered at inappropriate site [Unknown]
  - Insomnia [Recovered/Resolved]
  - Application site pain [Recovering/Resolving]
  - Application site pruritus [Recovering/Resolving]
  - Application site scar [Not Recovered/Not Resolved]
  - Application site erythema [Recovering/Resolving]

NARRATIVE: CASE EVENT DATE: 201511
